FAERS Safety Report 5322881-X (Version None)
Quarter: 2007Q2

REPORT INFORMATION
  Report Type: 
  Country: None (occurrence: None)
  Receive Date: 20070221
  Receipt Date: 20060721
  Transmission Date: 20071010
  Serious: Yes (Other)
  Sender: FDA-Public Use
  Company Number: PHEH2006US09475

PATIENT
  Age: 32 Year
  Sex: Male

DRUGS (2)
  1. DIOVAN [Suspect]
     Indication: HYPERTENSION
     Dosage: 160 MG, QD, ORAL
     Route: 048
     Dates: start: 20060713, end: 20060715
  2. CLINDAMYCIN (CLINDAMYCIN) [Concomitant]

REACTIONS (3)
  - ANGIOEDEMA [None]
  - OEDEMA [None]
  - URTICARIA [None]
